FAERS Safety Report 7550767-9 (Version None)
Quarter: 2011Q2

REPORT INFORMATION
  Report Type: 
  Country: None (occurrence: None)
  Receive Date: 20110616
  Receipt Date: 20110606
  Transmission Date: 20111010
  Serious: Yes (Other)
  Sender: FDA-Public Use
  Company Number: FR-JNJFOC-20110304418

PATIENT
  Sex: Female
  Weight: 104 kg

DRUGS (3)
  1. RISPERDAL CONSTA [Suspect]
     Indication: PSYCHOTIC DISORDER
     Route: 030
  2. ENZYME INHIBITORS [Concomitant]
     Route: 065
  3. ZESTRIL [Concomitant]
     Route: 065

REACTIONS (3)
  - DEVICE BREAKAGE [None]
  - WRONG TECHNIQUE IN DRUG USAGE PROCESS [None]
  - PSYCHIATRIC DECOMPENSATION [None]
